FAERS Safety Report 7465869-5 (Version None)
Quarter: 2011Q2

REPORT INFORMATION
  Report Type: 
  Country: None (occurrence: None)
  Receive Date: 20110509
  Receipt Date: 20100426
  Transmission Date: 20111010
  Serious: No
  Sender: FDA-Public Use
  Company Number: US-ALEXION-A201000160

PATIENT
  Sex: Female

DRUGS (10)
  1. SOLIRIS [Suspect]
     Dosage: 900 MG, Q2W
     Route: 042
     Dates: start: 20100308
  2. MAGNESIUM OXIDE [Concomitant]
     Dosage: UNK
     Route: 048
  3. FOSAMAX [Concomitant]
     Dosage: 70 MG, QD
     Route: 048
  4. FOLIC ACID [Concomitant]
     Dosage: 1 MG, QD
     Route: 048
  5. CALCIUM [Concomitant]
     Dosage: 600 MG, TID
     Route: 048
  6. SOLIRIS [Suspect]
     Indication: PAROXYSMAL NOCTURNAL HAEMOGLOBINURIA
     Dosage: 600 MG, QW X 4 WEEKS
     Route: 042
     Dates: start: 20100208, end: 20100301
  7. SUMATRIPTAN [Concomitant]
     Indication: MIGRAINE
     Dosage: 50 MG, QD
     Route: 048
  8. VITAMIN C                          /00008001/ [Concomitant]
     Dosage: 500 MG, QD
     Route: 048
  9. VITAMIN A [Concomitant]
     Dosage: 2000 IU, QD
     Route: 048
  10. FISH OIL [Concomitant]
     Dosage: 1000 UNK, QD
     Route: 048

REACTIONS (3)
  - MIGRAINE [None]
  - INSOMNIA [None]
  - MUSCLE SPASMS [None]
